FAERS Safety Report 5397963-7 (Version None)
Quarter: 2007Q3

REPORT INFORMATION
  Report Type: 
  Country: None (occurrence: None)
  Receive Date: 20070724
  Receipt Date: 20070720
  Transmission Date: 20080115
  Serious: Yes (Death)
  Sender: FDA-Public Use
  Company Number: 163-21880-07071091

PATIENT
  Age: 64 Year
  Sex: Female

DRUGS (2)
  1. REVLIMID [Suspect]
     Indication: MULTIPLE MYELOMA
     Dosage: 25-15MG, DAILY, ORAL; 10 MG, 1 IN 1 D, ORAL
     Route: 048
     Dates: start: 20060920, end: 20061001
  2. REVLIMID [Suspect]
     Indication: MULTIPLE MYELOMA
     Dosage: 25-15MG, DAILY, ORAL; 10 MG, 1 IN 1 D, ORAL
     Route: 048
     Dates: start: 20061020, end: 20070601

REACTIONS (1)
  - DEATH [None]
